FAERS Safety Report 7383381-9 (Version None)
Quarter: 2011Q1

REPORT INFORMATION
  Report Type: 
  Country: None (occurrence: None)
  Receive Date: 20110330
  Receipt Date: 20110317
  Transmission Date: 20110831
  Serious: Yes (Hospitalization)
  Sender: FDA-Public Use
  Company Number: NZ-BAYER-2011-023561

PATIENT
  Age: 56 Year
  Sex: Female

DRUGS (3)
  1. BETAFERON [Suspect]
     Indication: MULTIPLE SCLEROSIS
     Dosage: 1 ML, QOD
     Dates: start: 20110114
  2. WARFARIN [Concomitant]
     Indication: MITRAL VALVE REPLACEMENT
  3. ASPIRIN [Concomitant]
     Indication: MITRAL VALVE REPLACEMENT

REACTIONS (1)
  - INTERNATIONAL NORMALISED RATIO FLUCTUATION [None]
